FAERS Safety Report 4957023-3 (Version None)
Quarter: 2006Q1

REPORT INFORMATION
  Report Type: 
  Country: None (occurrence: None)
  Receive Date: 20060329
  Receipt Date: 20060316
  Transmission Date: 20060701
  Serious: Yes (Hospitalization)
  Sender: FDA-Public Use
  Company Number: US-JNJFOC-20060304749

PATIENT
  Age: 57 Year
  Sex: Female
  Weight: 121.11 kg

DRUGS (5)
  1. EXTRA STRENGTH TYLENOL [Suspect]
     Route: 048
  2. EXTRA STRENGTH TYLENOL [Suspect]
     Dosage: 1000 MG EVERY 4-6 HOURS AS NEEDED FOR SEVERAL YEARS
     Route: 048
  3. MOTRIN IB [Suspect]
     Route: 048
  4. MOTRIN IB [Suspect]
     Route: 048
  5. BENADRYL [Interacting]
     Indication: SLEEP DISORDER
     Dosage: AT NIGHT AS NEEDED FOR SEVERAL YEARS

REACTIONS (5)
  - ABDOMINAL PAIN UPPER [None]
  - DIARRHOEA [None]
  - DRUG INTERACTION [None]
  - HYPERSENSITIVITY [None]
  - POLLAKIURIA [None]
